FAERS Safety Report 6474705-5 (Version None)
Quarter: 2009Q4

REPORT INFORMATION
  Report Type: 
  Country: None (occurrence: None)
  Receive Date: 20091204
  Receipt Date: 20091130
  Transmission Date: 20100525
  Serious: Yes (Other)
  Sender: FDA-Public Use
  Company Number: A0832289A

PATIENT
  Age: 56 Year
  Sex: Female

DRUGS (4)
  1. ADVAIR DISKUS 100/50 [Suspect]
     Indication: ASTHMA
     Dosage: 1PUFF TWICE PER DAY
     Route: 055
     Dates: start: 20080601
  2. STEROIDS [Suspect]
  3. FLU SHOT [Concomitant]
  4. ALBUTEROL [Concomitant]

REACTIONS (7)
  - DRUG ADMINISTRATION ERROR [None]
  - DYSGEUSIA [None]
  - DYSPNOEA [None]
  - FEELING ABNORMAL [None]
  - MUSCLE SPASMS [None]
  - PARALYSIS [None]
  - PRODUCT QUALITY ISSUE [None]
